FAERS Safety Report 8619444 (Version 2)
Quarter: 2013Q1

REPORT INFORMATION
  Report Type: Spontaneous
  Country: FR (occurrence: FR)
  Receive Date: 20120618
  Receipt Date: 20130118
  Transmission Date: 20140127
  Serious: Yes (Death, Hospitalization)
  Sender: FDA-Public Use
  Company Number: FR-PFIZER INC-2012141869

PATIENT
  Age: 61 Year
  Sex: Male

DRUGS (12)
  1. PIPERACILLIN/TAZOBACTAM [Suspect]
     Indication: CITROBACTER SEPSIS
     Dosage: 4 G, 4X/DAY
     Route: 042
     Dates: start: 20120509, end: 20120523
  2. ATACAND [Concomitant]
  3. TENORMINE [Concomitant]
  4. KARDEGIC [Concomitant]
  5. NOVONORM [Concomitant]
  6. INEGY [Concomitant]
  7. MOPRAL [Concomitant]
  8. TOPALGIC [Concomitant]
  9. STILNOX [Concomitant]
  10. NORADRENALINE [Concomitant]
  11. GENTAMICIN [Concomitant]
     Indication: CITROBACTER SEPSIS
     Dosage: UNK
     Dates: start: 20120510
  12. DALACIN [Concomitant]
     Indication: CITROBACTER SEPSIS
     Dosage: UNK
     Dates: start: 20120510

REACTIONS (2)
  - Agranulocytosis [Recovered/Resolved]
  - Bone marrow failure [Recovered/Resolved]
